FAERS Safety Report 4879187-2 (Version None)
Quarter: 2006Q1

REPORT INFORMATION
  Report Type: 
  Country: None (occurrence: None)
  Receive Date: 20060112
  Receipt Date: 20051212
  Transmission Date: 20060701
  Serious: Yes (Death, Life-Threatening, Hospitalization)
  Sender: FDA-Public Use
  Company Number: DE-ROCHE-428050

PATIENT
  Age: 65 Year
  Sex: Male

DRUGS (3)
  1. CAPECITABINE [Suspect]
     Dosage: ON DAYS 1-14 EVERY THREE WEEKS.
     Route: 048
     Dates: start: 20051130, end: 20051211
  2. CETUXIMAB [Suspect]
     Route: 042
     Dates: start: 20051124, end: 20051211
  3. OXALIPLATIN [Suspect]
     Route: 042
     Dates: start: 20051130, end: 20051211

REACTIONS (12)
  - ACUTE RESPIRATORY DISTRESS SYNDROME [None]
  - CARDIOPULMONARY FAILURE [None]
  - DYSPHAGIA [None]
  - ENTERITIS [None]
  - GASTROINTESTINAL HAEMORRHAGE [None]
  - HYPOXIA [None]
  - LEUKOPENIA [None]
  - MUCOSAL INFLAMMATION [None]
  - MULTI-ORGAN FAILURE [None]
  - NEUTROPENIC SEPSIS [None]
  - TACHYARRHYTHMIA [None]
  - THROMBOCYTOPENIA [None]
